FAERS Safety Report 8174754 (Version 3)
Quarter: 2012Q4

REPORT INFORMATION
  Report Type: 
  Country: US (occurrence: US)
  Receive Date: 20111011
  Receipt Date: 20121231
  Transmission Date: 20130627
  Serious: No
  Sender: FDA-Public Use
  Company Number: US-BIOGENIDEC-2011BI037533

PATIENT
  Age: 64 Year
  Sex: Female

DRUGS (3)
  1. TYSABRI [Suspect]
     Indication: MULTIPLE SCLEROSIS
     Route: 042
     Dates: start: 20110901
  2. AVONEX [Concomitant]
     Indication: MULTIPLE SCLEROSIS
     Route: 030
  3. LAMICTAL [Concomitant]
     Indication: CONVULSION

REACTIONS (10)
  - Cardiac flutter [Recovered/Resolved]
  - Heart rate increased [Recovered/Resolved]
  - Nausea [Recovered/Resolved]
  - Headache [Recovered/Resolved]
  - Gait disturbance [Recovered/Resolved]
  - Nervous system disorder [Unknown]
  - Extrasystoles [Unknown]
  - Hypersensitivity [Recovered/Resolved]
  - Fatigue [Recovered/Resolved]
  - Blood pressure increased [Recovered/Resolved]
